FAERS Safety Report 5422298-3 (Version None)
Quarter: 2007Q3

REPORT INFORMATION
  Report Type: 
  Country: None (occurrence: None)
  Receive Date: 20070817
  Receipt Date: 20070801
  Transmission Date: 20080115
  Serious: Yes (Life-Threatening)
  Sender: FDA-Public Use
  Company Number: 2007JP003655

PATIENT
  Age: 74 Year
  Sex: Female

DRUGS (2)
  1. VESICARE [Suspect]
     Indication: HYPERTONIC BLADDER
     Dosage: 5 MG, UID/QD, ORAL; 2.5 MG, UID/QD, ORAL
     Route: 048
     Dates: start: 20070213, end: 20070219
  2. VESICARE [Suspect]
     Indication: HYPERTONIC BLADDER
     Dosage: 5 MG, UID/QD, ORAL; 2.5 MG, UID/QD, ORAL
     Route: 048
     Dates: start: 20070220

REACTIONS (2)
  - BLADDER NEOPLASM [None]
  - DRY MOUTH [None]
